FAERS Safety Report 4650907-5 (Version None)
Quarter: 2005Q2

REPORT INFORMATION
  Report Type: 
  Country: None (occurrence: None)
  Receive Date: 20050429
  Receipt Date: 20050417
  Transmission Date: 20051028
  Serious: Yes (Other)
  Sender: FDA-Public Use
  Company Number: 2005062182

PATIENT
  Age: 18 Year
  Sex: Female
  Weight: 49.8957 kg

DRUGS (2)
  1. DEPO-PROVERA [Suspect]
     Indication: ILL-DEFINED DISORDER
     Dosage: SEE IMAGE
     Dates: start: 20000801, end: 20000801
  2. DEPO-PROVERA [Suspect]
     Indication: ILL-DEFINED DISORDER
     Dosage: SEE IMAGE
     Dates: start: 20050201, end: 20050201

REACTIONS (6)
  - DRUG INEFFECTIVE [None]
  - DYSMENORRHOEA [None]
  - INADEQUATE ANALGESIA [None]
  - MENORRHAGIA [None]
  - SUICIDAL IDEATION [None]
  - THROMBOSIS [None]
